FAERS Safety Report 6443978-7 (Version None)
Quarter: 2009Q4

REPORT INFORMATION
  Report Type: 
  Country: None (occurrence: None)
  Receive Date: 20091117
  Receipt Date: 20091117
  Transmission Date: 20100525
  Serious: Yes (Other)
  Sender: FDA-Public Use
  Company Number: None

PATIENT
  Age: 45 Year
  Sex: Female
  Weight: 65.318 kg

DRUGS (3)
  1. LEVONORGESTREL + ETHINYL ESTRADIOL [Suspect]
     Indication: ENDOMETRIOSIS
     Dosage: ONE DAILY FOR 91 DAYS PO
     Route: 048
     Dates: start: 20080801, end: 20090717
  2. LEVONORGESTREL + ETHINYL ESTRADIOL [Suspect]
     Indication: PELVIC PAIN
     Dosage: ONE DAILY FOR 91 DAYS PO
     Route: 048
     Dates: start: 20080801, end: 20090717
  3. PILOCARPINE HYDROCHLORIDE [Concomitant]

REACTIONS (2)
  - RETINAL VEIN OCCLUSION [None]
  - THROMBOSIS [None]
